FAERS Safety Report 10260861 (Version 1)
Quarter: 2014Q2

REPORT INFORMATION
  Report Type: Spontaneous
  Country: US (occurrence: CA)
  Receive Date: 20140626
  Receipt Date: 20140626
  Transmission Date: 20141212
  Serious: Yes (Other)
  Sender: FDA-Public Use
  Company Number: 2014SP003553

PATIENT
  Age: 57 Year
  Sex: Female
  Weight: 66 kg

DRUGS (18)
  1. MORPHINE SULFATE [Concomitant]
  2. WELLBUTRIN [Concomitant]
  3. DOXORUBICIN [Suspect]
     Indication: NEOPLASM MALIGNANT
  4. FLUDARABINE [Suspect]
     Indication: PRODUCT USED FOR UNKNOWN INDICATION
  5. PREDNISOLONE [Suspect]
     Indication: PRODUCT USED FOR UNKNOWN INDICATION
  6. CYCLOPHOSPHAMIDE [Suspect]
     Indication: PRODUCT USED FOR UNKNOWN INDICATION
  7. RITUXAN [Suspect]
     Indication: PRODUCT USED FOR UNKNOWN INDICATION
     Route: 042
  8. VINCRISTINE [Suspect]
     Indication: PRODUCT USED FOR UNKNOWN INDICATION
  9. ACYCLOVIR /00587301/ [Concomitant]
  10. ALENDRONATE SODIUM [Concomitant]
  11. AMOXICILLIN [Concomitant]
  12. ATIVAN [Concomitant]
  13. CRESTOR [Concomitant]
  14. ESCITALOPRAM OXALATE [Concomitant]
  15. LYRICA [Concomitant]
  16. MEROPENEM [Concomitant]
     Route: 042
  17. MORPHINE [Concomitant]
  18. PREMARIN [Concomitant]

REACTIONS (8)
  - No therapeutic response [Unknown]
  - Malignant neoplasm progression [Not Recovered/Not Resolved]
  - Bone marrow transplant [Not Recovered/Not Resolved]
  - Graft versus host disease [Not Recovered/Not Resolved]
  - Necrosis [Not Recovered/Not Resolved]
  - Cataract [Not Recovered/Not Resolved]
  - Full blood count decreased [Not Recovered/Not Resolved]
  - Wound [Not Recovered/Not Resolved]
